FAERS Safety Report 4807886-7 (Version None)
Quarter: 2005Q4

REPORT INFORMATION
  Report Type: 
  Country: None (occurrence: None)
  Receive Date: 20051021
  Receipt Date: 20051005
  Transmission Date: 20060501
  Serious: Yes (Death)
  Sender: FDA-Public Use
  Company Number: 12564

PATIENT
  Sex: Male

DRUGS (1)
  1. ONCOVIN [Suspect]
     Indication: BURKITT'S LYMPHOMA

REACTIONS (5)
  - DRUG ADMINISTRATION ERROR [None]
  - INCORRECT ROUTE OF DRUG ADMINISTRATION [None]
  - PAIN [None]
  - PARALYSIS [None]
  - WRONG DRUG ADMINISTERED [None]
